FAERS Safety Report 9225495 (Version 2)
Quarter: 2013Q2

REPORT INFORMATION
  Report Type: Spontaneous
  Country: RO (occurrence: RO)
  Receive Date: 20130411
  Receipt Date: 20130523
  Transmission Date: 20140414
  Serious: Yes (Death, Other)
  Sender: FDA-Public Use
  Company Number: RO-ROCHE-1209918

PATIENT
  Age: 61 Year
  Sex: Male

DRUGS (5)
  1. ACTILYSE [Suspect]
     Indication: ISCHAEMIC STROKE
     Dosage: IN A WEIGHT-ADJUSTED DOSE
     Route: 042
  2. METHYLPREDNISOLONE [Concomitant]
     Indication: WALDENSTROM^S MACROGLOBULINAEMIA
  3. HYDROXYCHLOROQUINE [Concomitant]
     Indication: WALDENSTROM^S MACROGLOBULINAEMIA
  4. PROTON PUMP INHIBITORS [Concomitant]
  5. ASPIRIN [Concomitant]

REACTIONS (6)
  - Ischaemic stroke [Fatal]
  - Coma [Fatal]
  - Hypotension [Fatal]
  - Pyrexia [Unknown]
  - Tachypnoea [Unknown]
  - Blood pressure increased [Recovered/Resolved]
